FAERS Safety Report 10390212 (Version 1)
Quarter: 2014Q1

REPORT INFORMATION
  Report Type: Spontaneous
  Country: US (occurrence: None)
  Receive Date: 20140306
  Receipt Date: 20140306
  Transmission Date: 20141002
  Serious: Yes (Other)
  Sender: FDA-Public Use
  Company Number: 163-21880-13014334

PATIENT
  Age: 75 Year
  Sex: Male
  Weight: 94.85 kg

DRUGS (19)
  1. REVLIMID (LENALIDOMIDE( (25 MILLIGRAM, CAPSULES) [Suspect]
     Indication: PLASMA CELL MYELOMA
     Dosage: 14 IN 21D
     Dates: start: 20121228, end: 20130125
  2. AMIODARONE (AMIODARONE) [Concomitant]
  3. COUMADIN (WARFARIN SODIUM) [Concomitant]
  4. VELCADE (BORTEZOMIB) [Concomitant]
  5. LINEZOLID (LINEZOLID) [Concomitant]
  6. VANCOMYCIN (VANCOMYCIN) [Concomitant]
  7. STEROIDS (IOTHER THERAPEUTIC PRODUCTS) [Concomitant]
  8. GANCICLOVIR (GANCICLOVIR) [Concomitant]
  9. OXYGEN (OXYGEN) [Concomitant]
  10. CEFTRIAXONE (CEFTRIAXONE) [Concomitant]
  11. AZITHROMYCIN (AZITHROMYCIN) [Concomitant]
  12. FLUCONAZOLE (FLUCONAZOLE) [Concomitant]
  13. LEVOFLOXACIN (LEVOFLOXACIN) [Concomitant]
  14. DIGOXIN (DIGOXIN) [Concomitant]
  15. DILTIAZEM (DILTIAZEM) [Concomitant]
  16. RIVOROXABAN (RIVAROXABAN) [Concomitant]
  17. VALIUM (DIAZEPAM) [Concomitant]
  18. POTASSIUM (POTASSIUM) [Concomitant]
  19. TORASEMIDE (TORASEMIDE) [Concomitant]

REACTIONS (2)
  - Dermatitis allergic [None]
  - Rash erythematous [None]
